FAERS Safety Report 18045063 (Version 2)
Quarter: 2021Q3

REPORT INFORMATION
  Report Type: Report from Study
  Country: HR (occurrence: HR)
  Receive Date: 20200720
  Receipt Date: 20210902
  Transmission Date: 20211014
  Serious: Yes (Life-Threatening, Hospitalization, Other)
  Sender: FDA-Public Use
  Company Number: HR-SEATTLE GENETICS-2020SGN03189

PATIENT
  Age: 57 Year
  Sex: Female
  Weight: 80 kg

DRUGS (4)
  1. VINBLASTINE [Concomitant]
     Active Substance: VINBLASTINE
     Indication: HODGKIN^S DISEASE
     Dosage: 11.5 MILLIGRAM, Q2WEEKS
     Route: 065
     Dates: start: 20160203
  2. BRENTUXIMAB VEDOTIN?MPI [Suspect]
     Active Substance: BRENTUXIMAB VEDOTIN
     Indication: HODGKIN^S DISEASE
     Dosage: 96 MILLIGRAM, Q2WEEKS
     Route: 065
     Dates: start: 20160203
  3. DACARBAZINE. [Concomitant]
     Active Substance: DACARBAZINE
     Indication: HODGKIN^S DISEASE
     Dosage: 724 MILLIGRAM, Q2WEEKS
     Route: 065
     Dates: start: 20160203
  4. DOXORUBICIN [DOXORUBICIN HYDROCHLORIDE] [Concomitant]
     Active Substance: DOXORUBICIN HYDROCHLORIDE
     Indication: HODGKIN^S DISEASE
     Dosage: 48 MILLIGRAM, Q2WEEKS
     Route: 065
     Dates: start: 20160203

REACTIONS (1)
  - Acute promyelocytic leukaemia [Recovered/Resolved]

NARRATIVE: CASE EVENT DATE: 20181003
